FAERS Safety Report 16994300 (Version 1)
Quarter: 2019Q4

REPORT INFORMATION
  Report Type: Report from Study
  Country: CN (occurrence: CN)
  Receive Date: 20191105
  Receipt Date: 20191105
  Transmission Date: 20200122
  Serious: Yes (Other)
  Sender: FDA-Public Use
  Company Number: NVSC2019CN023420

PATIENT
  Age: 50 Year
  Sex: Male

DRUGS (1)
  1. ZYKADIA [Suspect]
     Active Substance: CERITINIB
     Indication: NON-SMALL CELL LUNG CANCER
     Dosage: 450 MG, QD
     Route: 048

REACTIONS (4)
  - Adenomyosis [Unknown]
  - Pneumonitis [Unknown]
  - Gallbladder enlargement [Unknown]
  - Pleural thickening [Unknown]

NARRATIVE: CASE EVENT DATE: 20190821
